FAERS Safety Report 15718209 (Version 2)
Quarter: 2018Q4

REPORT INFORMATION
  Report Type: Spontaneous
  Country: US (occurrence: US)
  Receive Date: 20181213
  Receipt Date: 20181220
  Transmission Date: 20190205
  Serious: No
  Sender: FDA-Public Use
  Company Number: US-HORIZON-ACT-0373-2018

PATIENT
  Age: 11 Month
  Sex: Male

DRUGS (5)
  1. SMZ-TMP [Concomitant]
     Active Substance: SULFAMETHOXAZOLE\TRIMETHOPRIM
  2. ACTIMMUNE [Suspect]
     Active Substance: INTERFERON GAMMA-1B
     Indication: NEUTROPHIL FUNCTION DISORDER
     Dosage: 12 ?G EVERY MONDAY, WEDNESDAY AND FRIDAY
     Route: 058
     Dates: start: 20180920
  3. SPORANOX [Concomitant]
     Active Substance: ITRACONAZOLE
  4. SULFAMETHOX [Concomitant]
  5. ITRACONAZOLE SOLUTION [Concomitant]

REACTIONS (1)
  - Pyrexia [Recovered/Resolved]
